FAERS Safety Report 6377659-5 (Version None)
Quarter: 2009Q3

REPORT INFORMATION
  Report Type: 
  Country: None (occurrence: None)
  Receive Date: 20090925
  Receipt Date: 20090916
  Transmission Date: 20100115
  Serious: Yes (Hospitalization)
  Sender: FDA-Public Use
  Company Number: JP-ABBOTT-09P-087-0597940-00

PATIENT
  Age: 66 Year
  Sex: Male

DRUGS (2)
  1. HUMIRA [Suspect]
     Indication: PSORIASIS
     Route: 058
     Dates: start: 20060817, end: 20070215
  2. HUMIRA [Suspect]
     Route: 058
     Dates: start: 20070301

REACTIONS (2)
  - ABDOMINAL DISCOMFORT [None]
  - ANGINA PECTORIS [None]
